FAERS Safety Report 6573319-6 (Version None)
Quarter: 2010Q1

REPORT INFORMATION
  Report Type: 
  Country: None (occurrence: None)
  Receive Date: 20100208
  Receipt Date: 20100129
  Transmission Date: 20100710
  Serious: Yes (Hospitalization)
  Sender: FDA-Public Use
  Company Number: US-PFIZER INC-2010006166

PATIENT
  Sex: Male
  Weight: 45.125 kg

DRUGS (2)
  1. CP-751,871 [Suspect]
     Indication: NEOPLASM
     Dosage: 915 MG, EVERY 3 WEEKS
     Route: 042
     Dates: start: 20091208, end: 20100105
  2. SUNITINIB MALATE [Suspect]
     Indication: NEOPLASM
     Dosage: 25 MG, SCHEDULE 2/1
     Route: 048
     Dates: start: 20091208, end: 20100111

REACTIONS (2)
  - RENAL FAILURE [None]
  - URETERIC OBSTRUCTION [None]
